FAERS Safety Report 16608448 (Version 1)
Quarter: 2019Q3

REPORT INFORMATION
  Report Type: Spontaneous
  Country: US (occurrence: US)
  Receive Date: 20190722
  Receipt Date: 20190722
  Transmission Date: 20191004
  Serious: No
  Sender: FDA-Public Use
  Company Number: US-PFIZER INC-2019305488

PATIENT
  Age: 52 Year
  Sex: Female
  Weight: 80.73 kg

DRUGS (4)
  1. GABAPENTIN. [Suspect]
     Active Substance: GABAPENTIN
     Indication: NEURALGIA
     Dosage: 300 MG, 1X/DAY(BED TIME WITH ONE PILL A DAY )
     Dates: start: 20190613
  2. GABAPENTIN. [Suspect]
     Active Substance: GABAPENTIN
     Dosage: 900 MG, 1X/DAY(INCREASE TO 3 PILLS AT BED TIME)
  3. VALSARTAN. [Concomitant]
     Active Substance: VALSARTAN
     Indication: HYPERTENSION
     Dosage: UNK
  4. GABAPENTIN. [Suspect]
     Active Substance: GABAPENTIN
     Indication: PAIN IN EXTREMITY
     Dosage: 600 MG, DAILY(2 PILL A DAY FOR 7 DAYS )

REACTIONS (6)
  - Somnolence [Unknown]
  - Fatigue [Unknown]
  - Dizziness [Unknown]
  - Balance disorder [Unknown]
  - Off label use [Unknown]
  - Drug ineffective for unapproved indication [Unknown]
